FAERS Safety Report 7799343-3 (Version None)
Quarter: 2011Q4

REPORT INFORMATION
  Report Type: 
  Country: None (occurrence: None)
  Receive Date: 20111006
  Receipt Date: 20110928
  Transmission Date: 20120403
  Serious: Yes (Life-Threatening, Hospitalization, Other)
  Sender: FDA-Public Use
  Company Number: PHHY2011FR86191

PATIENT
  Sex: Male

DRUGS (16)
  1. PREVISCAN [Concomitant]
     Indication: ARRHYTHMIA
     Dosage: 20 MG, UNK
     Dates: start: 20110113, end: 20110124
  2. LASIX [Concomitant]
     Indication: CARDIAC FAILURE
     Dosage: UNK
     Dates: start: 20101203, end: 20110113
  3. LYRICA [Concomitant]
     Indication: PAIN
     Dosage: 300 MG, QD
     Dates: start: 20101230, end: 20110113
  4. NICARDIPINE HCL [Suspect]
     Indication: HYPERTENSION
     Dosage: 50 MG, QD
     Route: 048
     Dates: start: 20101224, end: 20110124
  5. VANCOMYCIN [Suspect]
     Dosage: 2 G, QD
     Route: 042
     Dates: start: 20101217, end: 20110116
  6. ALDACTONE [Suspect]
     Indication: CARDIAC FAILURE
     Dosage: 50 MG, QD
     Route: 048
     Dates: start: 20101229, end: 20110113
  7. FLUCONAZOLE [Suspect]
     Dosage: 1 DF, BID
     Route: 042
     Dates: start: 20101218, end: 20110112
  8. REVATIO [Concomitant]
     Indication: PULMONARY HYPERTENSION
     Dosage: 60 MG, QD
     Dates: start: 20101206, end: 20110217
  9. ZYRTEC [Concomitant]
     Dosage: 10 MG, QD
     Dates: start: 20110118, end: 20110129
  10. XANAX [Suspect]
     Indication: ANXIETY
     Dosage: 0.5 MG, QD
     Route: 048
     Dates: start: 20101201, end: 20110113
  11. PERINDOPRIL ERBUMINE [Suspect]
     Indication: CARDIAC FAILURE
     Dosage: 5 MG, QD
     Route: 048
     Dates: start: 20101225, end: 20110124
  12. COROTROPE [Concomitant]
     Indication: CARDIAC FAILURE
     Dosage: 10 MG/10 ML
     Dates: start: 20101201, end: 20110203
  13. OXYCODONE HCL [Suspect]
     Indication: PAIN
     Dosage: UNK
     Route: 042
     Dates: start: 20101219, end: 20110112
  14. ESOMEPRAZOLE SODIUM [Concomitant]
     Dosage: 40 MG, QD
     Dates: start: 20101220
  15. RIFADIN [Concomitant]
     Indication: INFECTION
     Dosage: 600 MG, BID
     Dates: start: 20101217
  16. HEPARIN SODIUM [Concomitant]
     Dosage: 8000 IU, UNK
     Dates: start: 20101201

REACTIONS (14)
  - SEPTIC SHOCK [None]
  - DRUG RASH WITH EOSINOPHILIA AND SYSTEMIC SYMPTOMS [None]
  - LYMPHOCYTIC INFILTRATION [None]
  - CHILLS [None]
  - HYPERCREATININAEMIA [None]
  - HAEMODYNAMIC INSTABILITY [None]
  - NEUTROPHIL COUNT INCREASED [None]
  - MULTI-ORGAN FAILURE [None]
  - INFECTION [None]
  - EOSINOPHILIA [None]
  - BLOOD ALKALINE PHOSPHATASE INCREASED [None]
  - PRURITUS [None]
  - RASH PAPULAR [None]
  - RENAL FAILURE [None]
